FAERS Safety Report 7221962-3 (Version None)
Quarter: 2011Q1

REPORT INFORMATION
  Report Type: 
  Country: None (occurrence: None)
  Receive Date: 20110112
  Receipt Date: 20040105
  Transmission Date: 20110831
  Serious: Yes (Hospitalization, Other)
  Sender: FDA-Public Use
  Company Number: B0692991A

PATIENT
  Sex: Female

DRUGS (1)
  1. DILATREND [Suspect]
     Indication: CARDIAC FAILURE
     Dosage: 25MG PER DAY
     Route: 065

REACTIONS (2)
  - ANKLE FRACTURE [None]
  - DIZZINESS [None]
